FAERS Safety Report 8594084-7 (Version None)
Quarter: 2012Q3

REPORT INFORMATION
  Report Type: 
  Country: None (occurrence: None)
  Receive Date: 20120814
  Receipt Date: 20120730
  Transmission Date: 20120928
  Serious: Yes (Death, Other)
  Sender: FDA-Public Use
  Company Number: CL-WATSON-2012-14105

PATIENT
  Age: 59 Year
  Sex: Male

DRUGS (1)
  1. TACROLIMUS [Suspect]
     Indication: LIVER TRANSPLANT
     Dosage: UNK
     Route: 065

REACTIONS (11)
  - GRAND MAL CONVULSION [None]
  - MUSCLE SPASTICITY [None]
  - ASPIRATION BRONCHIAL [None]
  - TREMOR [None]
  - CONFUSIONAL STATE [None]
  - ATAXIA [None]
  - OSMOTIC DEMYELINATION SYNDROME [None]
  - PNEUMONIA [None]
  - DYSPHAGIA [None]
  - DEPRESSED LEVEL OF CONSCIOUSNESS [None]
  - TOXICITY TO VARIOUS AGENTS [None]
